FAERS Safety Report 26132831 (Version 1)
Quarter: 2025Q4

REPORT INFORMATION
  Report Type: Report from Study
  Country: AU (occurrence: AU)
  Receive Date: 20251208
  Receipt Date: 20251208
  Transmission Date: 20260118
  Serious: Yes (Other)
  Sender: ROCHE
  Company Number: AU-ROCHE-3466392

PATIENT
  Age: 54 Year
  Sex: Male

DRUGS (13)
  1. OCREVUS [Suspect]
     Active Substance: OCRELIZUMAB
     Indication: Multiple sclerosis
     Route: 042
  2. OCREVUS [Suspect]
     Active Substance: OCRELIZUMAB
     Route: 042
     Dates: start: 2018
  3. GILENYA [Concomitant]
     Active Substance: FINGOLIMOD HYDROCHLORIDE
  4. AMITRIPTYLINE HYDROCHLORIDE [Concomitant]
     Active Substance: AMITRIPTYLINE HYDROCHLORIDE
  5. ENTACAPONE [Concomitant]
     Active Substance: ENTACAPONE
  6. LEVODOPA [Concomitant]
     Active Substance: LEVODOPA
  7. BENSERAZIDE HYDROCHLORIDE [Concomitant]
     Active Substance: BENSERAZIDE HYDROCHLORIDE
  8. SILODOSIN [Concomitant]
     Active Substance: SILODOSIN
  9. VENLAFAXINE [Concomitant]
     Active Substance: VENLAFAXINE HYDROCHLORIDE
  10. LAMOTRIGINE [Concomitant]
     Active Substance: LAMOTRIGINE
  11. PREGABALIN [Concomitant]
     Active Substance: PREGABALIN
  12. PANTOPRAZOLE [Concomitant]
     Active Substance: PANTOPRAZOLE
  13. ROTIGOTINE [Concomitant]
     Active Substance: ROTIGOTINE

REACTIONS (10)
  - Memory impairment [Unknown]
  - Aphasia [Unknown]
  - Cognitive disorder [Unknown]
  - Memory impairment [Unknown]
  - Micturition urgency [Unknown]
  - Nocturnal dyspnoea [Unknown]
  - Urinary retention [Unknown]
  - Prostatic disorder [Unknown]
  - Bladder disorder [Recovered/Resolved]
  - Prostatic disorder [Recovered/Resolved]

NARRATIVE: CASE EVENT DATE: 20231128
